FAERS Safety Report 5127150-9 (Version None)
Quarter: 2006Q4

REPORT INFORMATION
  Report Type: 
  Country: None (occurrence: None)
  Receive Date: 20061010
  Receipt Date: 20060926
  Transmission Date: 20070319
  Serious: Yes (Life-Threatening, Other)
  Sender: FDA-Public Use
  Company Number: 2006028567

PATIENT
  Age: 74 Year
  Sex: Female
  Weight: 68 kg

DRUGS (9)
  1. NEURONTIN [Suspect]
     Indication: POLYNEUROPATHY
     Dosage: 600 MG (300 MG, 3 IN 1 D), ORAL
     Route: 048
     Dates: start: 20051122, end: 20051130
  2. ALL OTHER THERAPEUTIC PRODUCTS (ALL OTHER THERAPEUTIC PRODUCTS) [Suspect]
     Dosage: 300 MG
     Dates: start: 20051206, end: 20051212
  3. SALBUTAMOL (SALBUTAMOL) [Concomitant]
  4. IPRATROPIUM BROMIDE [Concomitant]
  5. PREDNISONE TAB [Concomitant]
  6. PANTOPRAZOEL (PANTOPRAZOLE) [Concomitant]
  7. AMLODIPINE [Concomitant]
  8. ALL OTHER THERAPEUTIC PRODUCTS (ALL OTHER THERAPEUTIC PRODUCTS) [Concomitant]
  9. ENALAPRIL MALEATE [Concomitant]

REACTIONS (4)
  - BLOOD POTASSIUM INCREASED [None]
  - CONDITION AGGRAVATED [None]
  - RESPIRATORY DEPRESSION [None]
  - RESPIRATORY FAILURE [None]
